FAERS Safety Report 7802496-1 (Version None)
Quarter: 2011Q4

REPORT INFORMATION
  Report Type: 
  Country: None (occurrence: None)
  Receive Date: 20111007
  Receipt Date: 20110926
  Transmission Date: 20120403
  Serious: Yes (Other)
  Sender: FDA-Public Use
  Company Number: NL-GLAXOSMITHKLINE-B0752351A

PATIENT
  Age: 3 Year
  Sex: Male

DRUGS (1)
  1. FLUTICASONE PROPIONATE [Suspect]
     Indication: ASTHMA
     Route: 065

REACTIONS (4)
  - CUSHING'S SYNDROME [None]
  - ADRENAL INSUFFICIENCY [None]
  - DECREASED APPETITE [None]
  - DECREASED ACTIVITY [None]
